FAERS Safety Report 6547359-7 (Version None)
Quarter: 2010Q1

REPORT INFORMATION
  Report Type: 
  Country: None (occurrence: None)
  Receive Date: 20100122
  Receipt Date: 20100112
  Transmission Date: 20100710
  Serious: Yes (Other)
  Sender: FDA-Public Use
  Company Number: CHPA2010NL01267

PATIENT
  Sex: Female

DRUGS (1)
  1. LAMISIL CREAM UNKNOWN AT OR RX (NCH) [Suspect]
     Dosage: UNK, UNK
     Route: 061
     Dates: start: 20090501, end: 20091101

REACTIONS (2)
  - ABASIA [None]
  - DRUG INEFFECTIVE [None]
